FAERS Safety Report 22116233 (Version 1)
Quarter: 2023Q1

REPORT INFORMATION
  Report Type: Spontaneous
  Country: US (occurrence: US)
  Receive Date: 20230320
  Receipt Date: 20230320
  Transmission Date: 20230418
  Serious: No
  Sender: FDA-Public Use
  Company Number: US-PERRIGO-22US014409

PATIENT
  Age: 95 Year
  Sex: Male

DRUGS (2)
  1. ACETAMINOPHEN [Suspect]
     Active Substance: ACETAMINOPHEN
     Indication: Myalgia
     Dosage: 1300 MG, BID PRN
     Route: 048
     Dates: start: 202209, end: 20221021
  2. ACETAMINOPHEN [Suspect]
     Active Substance: ACETAMINOPHEN
     Indication: Arthritis

REACTIONS (4)
  - Skin exfoliation [Not Recovered/Not Resolved]
  - Pruritus [Recovered/Resolved]
  - Rash [Not Recovered/Not Resolved]
  - Blister [Not Recovered/Not Resolved]

NARRATIVE: CASE EVENT DATE: 20221001
